FAERS Safety Report 16412318 (Version 2)
Quarter: 2019Q3

REPORT INFORMATION
  Report Type: Report from Study
  Country: MX (occurrence: MX)
  Receive Date: 20190610
  Receipt Date: 20190709
  Transmission Date: 20191004
  Serious: Yes (Other)
  Sender: FDA-Public Use
  Company Number: PHHY2019MX123978

PATIENT
  Age: 56 Year
  Sex: Female
  Weight: 61 kg

DRUGS (4)
  1. EXFORGE HCT [Suspect]
     Active Substance: AMLODIPINE BESYLATE\HYDROCHLOROTHIAZIDE\VALSARTAN
     Dosage: 2 DF (AMLODIPINE 5MG, HYDROCHLOROTHIAZIDE 12.5 MG, VALSARTAN 160MG), QD
     Route: 048
     Dates: start: 201905, end: 20190525
  2. TENORETIC [Concomitant]
     Active Substance: ATENOLOL\CHLORTHALIDONE
     Indication: HYPERTENSION
     Dosage: 1 DF (125/50), QD (20 YEARS AGO)
     Route: 048
  3. EXFORGE HCT [Suspect]
     Active Substance: AMLODIPINE BESYLATE\HYDROCHLOROTHIAZIDE\VALSARTAN
     Dosage: 1 DF (AMLODIPINE 10 MG, HYDROCHLOROTHIAZIDE 25 MG, VALSARTAN 320 MG), QD
     Route: 048
     Dates: start: 20190525
  4. EXFORGE HCT [Suspect]
     Active Substance: AMLODIPINE BESYLATE\HYDROCHLOROTHIAZIDE\VALSARTAN
     Indication: HYPERTENSION
     Dosage: 1 DF (AMLODIPINE 5MG, HYDROCHLOROTHIAZIDE 12.5 MG, VALSARTAN 160MG), QD
     Route: 048
     Dates: start: 201807, end: 201905

REACTIONS (3)
  - Asphyxia [Recovered/Resolved]
  - Blood pressure increased [Recovering/Resolving]
  - Inappropriate schedule of product administration [Unknown]

NARRATIVE: CASE EVENT DATE: 201905
